FAERS Safety Report 6086965-3 (Version None)
Quarter: 2009Q1

REPORT INFORMATION
  Report Type: 
  Country: None (occurrence: None)
  Receive Date: 20090223
  Receipt Date: 20090210
  Transmission Date: 20090719
  Serious: Yes (Other)
  Sender: FDA-Public Use
  Company Number: US-ROCHE-612882

PATIENT
  Sex: Female

DRUGS (2)
  1. ISOTRETINOIN [Suspect]
     Indication: DRUG USE FOR UNKNOWN INDICATION
     Dosage: THE PATIENT WAS DISPENSED ISOTRETINOIN 40 MG CAPSULE ON 07 JANUARY 2009.
     Route: 048
     Dates: start: 20090107, end: 20090204
  2. YASMIN [Concomitant]
     Indication: CONTRACEPTION
     Dosage: FORM: PILL
     Route: 048
     Dates: start: 20081201

REACTIONS (1)
  - ABORTION SPONTANEOUS [None]
